FAERS Safety Report 10214663 (Version 1)
Quarter: 2014Q2

REPORT INFORMATION
  Report Type: Spontaneous
  Country: US (occurrence: US)
  Receive Date: 20140603
  Receipt Date: 20140603
  Transmission Date: 20141212
  Serious: Yes (Other)
  Sender: FDA-Public Use
  Company Number: US-JNJFOC-20140515759

PATIENT
  Age: 6 Decade
  Sex: Male

DRUGS (1)
  1. STELARA [Suspect]
     Indication: PSORIASIS
     Dosage: HAD RECEIVED 2 INJECTIONS
     Route: 058

REACTIONS (3)
  - Syncope [Unknown]
  - Coronary artery occlusion [Unknown]
  - Malaise [Unknown]
